FAERS Safety Report 7884185-0 (Version None)
Quarter: 2011Q4

REPORT INFORMATION
  Report Type: 
  Country: None (occurrence: None)
  Receive Date: 20111102
  Receipt Date: 20111021
  Transmission Date: 20120403
  Serious: Yes (Hospitalization)
  Sender: FDA-Public Use
  Company Number: FI-GLAXOSMITHKLINE-B0759461A

PATIENT
  Sex: Male

DRUGS (10)
  1. BENSERAZIDE HYDROCHLORIDE + LEVODOPA [Suspect]
     Indication: PARKINSON'S DISEASE
     Dosage: 1.5TAB PER DAY
     Route: 048
     Dates: start: 20090901
  2. SINEMET [Suspect]
     Indication: PARKINSON'S DISEASE
     Dosage: 5TAB PER DAY
     Route: 048
     Dates: start: 20060306
  3. JANUVIA [Suspect]
     Indication: DIABETES MELLITUS
     Dosage: 100MG PER DAY
     Route: 048
     Dates: start: 20110217, end: 20110516
  4. COHEMIN DEPOT [Concomitant]
     Indication: PERNICIOUS ANAEMIA
     Route: 030
     Dates: start: 20100215
  5. ASPIRIN AND DIPYRIDAMOLE [Concomitant]
     Dosage: 2CAP PER DAY
     Route: 048
     Dates: start: 20090306
  6. RETAFER [Concomitant]
     Indication: IRON DEFICIENCY
     Dosage: 100MG PER DAY
     Route: 048
     Dates: start: 20110421
  7. ENTACAPONE [Suspect]
     Indication: PARKINSON'S DISEASE
     Dosage: 1G PER DAY
     Route: 048
     Dates: start: 20090306
  8. FURESIS [Concomitant]
     Dosage: 40MG PER DAY
     Route: 048
     Dates: start: 20110421
  9. SINEMET [Suspect]
     Indication: PRODUCT USED FOR UNKNOWN INDICATION
     Dosage: 2TAB PER DAY
     Route: 048
     Dates: start: 20060306
  10. REQUIP CR [Suspect]
     Indication: PARKINSON'S DISEASE
     Dosage: 24MG PER DAY
     Route: 048
     Dates: start: 20091130

REACTIONS (6)
  - FALL [None]
  - DRUG INTERACTION [None]
  - OEDEMA [None]
  - NAUSEA [None]
  - WEIGHT DECREASED [None]
  - VOMITING [None]
